FAERS Safety Report 5817698-3 (Version None)
Quarter: 2008Q3

REPORT INFORMATION
  Report Type: 
  Country: None (occurrence: None)
  Receive Date: 20080722
  Receipt Date: 20080711
  Transmission Date: 20090109
  Serious: Yes (Other)
  Sender: FDA-Public Use
  Company Number: PHHY2008ES13861

PATIENT
  Age: 64 Year
  Sex: Female

DRUGS (1)
  1. FEMARA [Suspect]
     Dosage: UNK
     Dates: start: 19990101

REACTIONS (2)
  - INFECTION [None]
  - URINARY TRACT INFECTION [None]
